FAERS Safety Report 10188764 (Version 1)
Quarter: 2014Q2

REPORT INFORMATION
  Report Type: Spontaneous
  Country: JP (occurrence: JP)
  Receive Date: 20140522
  Receipt Date: 20140522
  Transmission Date: 20141212
  Serious: Yes (Other)
  Sender: FDA-Public Use
  Company Number: CHPA2014JP006833

PATIENT
  Sex: Female

DRUGS (3)
  1. PURSENNIDE [Suspect]
     Indication: CONSTIPATION
     Dosage: 24 MG, QD
     Route: 048
  2. CRESTOR [Suspect]
  3. SENNOSIDE [Concomitant]

REACTIONS (1)
  - Diabetes mellitus [Recovering/Resolving]
